FAERS Safety Report 9243071 (Version 1)
Quarter: 2013Q2

REPORT INFORMATION
  Report Type: Spontaneous
  Country: US (occurrence: US)
  Receive Date: 20130419
  Receipt Date: 20130419
  Transmission Date: 20140414
  Serious: No
  Sender: FDA-Public Use
  Company Number: US-ASTRAZENECA-2013SE22113

PATIENT
  Age: 64 Year
  Sex: Female
  Weight: 67.1 kg

DRUGS (4)
  1. CRESTOR [Suspect]
     Indication: BLOOD CHOLESTEROL ABNORMAL
     Route: 048
     Dates: start: 2008
  2. FRESH COAT [Concomitant]
     Indication: DRY EYE
     Dosage: 1 DROP PER EYE DAILY
     Route: 050
     Dates: start: 201301
  3. PREMARIN [Concomitant]
     Indication: OESTROGEN REPLACEMENT THERAPY
     Dosage: 1 PEA SIZED DROP BIWK
     Route: 061
     Dates: start: 2012
  4. BLOOD PRESSURE MEDICATIONS [Concomitant]

REACTIONS (4)
  - Food allergy [Unknown]
  - Weight decreased [Unknown]
  - Adverse event [Unknown]
  - Hypersensitivity [Unknown]
